FAERS Safety Report 6943345-3 (Version None)
Quarter: 2010Q3

REPORT INFORMATION
  Report Type: 
  Country: None (occurrence: None)
  Receive Date: 20100823
  Receipt Date: 20100806
  Transmission Date: 20110219
  Serious: Yes (Other)
  Sender: FDA-Public Use
  Company Number: DSA_43658_2010

PATIENT
  Age: 60 Year
  Sex: Female

DRUGS (1)
  1. ENALAPRIL MALEATE [Suspect]
     Indication: HYPERTENSION
     Dosage: (10 MG QD ORAL), (DF ORAL)
     Route: 048
     Dates: start: 20090101, end: 20100521

REACTIONS (3)
  - BLOOD CREATINE PHOSPHOKINASE INCREASED [None]
  - LOSS OF CONSCIOUSNESS [None]
  - WHITE BLOOD CELL COUNT INCREASED [None]
